FAERS Safety Report 15975805 (Version 1)
Quarter: 2019Q1

REPORT INFORMATION
  Report Type: Spontaneous
  Country: GB (occurrence: GB)
  Receive Date: 20190218
  Receipt Date: 20190218
  Transmission Date: 20190418
  Serious: Yes (Other)
  Sender: FDA-Public Use
  Company Number: GB-GLAXOSMITHKLINE-GB2019GSK028626

PATIENT
  Age: 7 Week

DRUGS (1)
  1. LAMICTAL [Suspect]
     Active Substance: LAMOTRIGINE
     Indication: EPILEPSY
     Dosage: 125 MG, UNK

REACTIONS (7)
  - Jaundice [Unknown]
  - Stridor [Unknown]
  - Exposure via breast milk [Unknown]
  - Sleep disorder [Unknown]
  - Skin discolouration [Unknown]
  - Somnolence [Unknown]
  - Laryngomalacia [Unknown]
